FAERS Safety Report 9466278 (Version 2)
Quarter: 2013Q3

REPORT INFORMATION
  Report Type: Spontaneous
  Country: US (occurrence: US)
  Receive Date: 20130820
  Receipt Date: 20130821
  Transmission Date: 20140515
  Serious: Yes (Other)
  Sender: FDA-Public Use
  Company Number: CHPA2013US013019

PATIENT
  Age: 57 Year
  Sex: Female

DRUGS (5)
  1. VOLTAREN GEL [Suspect]
     Indication: BACK PAIN
     Dosage: 4 G, EVERY 2 DAYS
     Route: 061
     Dates: start: 201302
  2. TRAMADOL [Concomitant]
     Indication: PAIN
     Dosage: UNK, UNK
     Dates: start: 201302
  3. NORCO [Concomitant]
     Indication: PAIN
     Dosage: UNK, UNK
     Dates: start: 2012
  4. BACLOFEN [Concomitant]
     Indication: MUSCLE RELAXANT THERAPY
     Dosage: UNK, UNK
     Dates: start: 1999
  5. VALIUM [Concomitant]
     Dosage: UNK, UNK
     Dates: start: 2011

REACTIONS (4)
  - Haematochezia [Recovered/Resolved]
  - Faeces discoloured [Recovered/Resolved]
  - Off label use [Unknown]
  - Drug administered at inappropriate site [Unknown]
